FAERS Safety Report 19391417 (Version 12)
Quarter: 2023Q2

REPORT INFORMATION
  Report Type: Report from Study
  Country: CA (occurrence: CA)
  Receive Date: 20210608
  Receipt Date: 20230417
  Transmission Date: 20230721
  Serious: Yes (Other)
  Sender: FDA-Public Use
  Company Number: CA-TAKEDA-2019TUS041938

PATIENT
  Age: 33 Year
  Sex: Male

DRUGS (12)
  1. VEDOLIZUMAB [Suspect]
     Active Substance: VEDOLIZUMAB
     Indication: Colitis ulcerative
     Dosage: 300 MILLIGRAM
     Route: 042
     Dates: start: 20190404
  2. VEDOLIZUMAB [Suspect]
     Active Substance: VEDOLIZUMAB
     Dosage: 300 MILLIGRAM
     Route: 042
  3. VEDOLIZUMAB [Suspect]
     Active Substance: VEDOLIZUMAB
     Dosage: 300 MILLIGRAM
     Route: 042
  4. VEDOLIZUMAB [Suspect]
     Active Substance: VEDOLIZUMAB
     Dosage: 300 MILLIGRAM
     Route: 042
  5. VEDOLIZUMAB [Suspect]
     Active Substance: VEDOLIZUMAB
     Dosage: 300 MILLIGRAM
     Route: 042
  6. VEDOLIZUMAB [Suspect]
     Active Substance: VEDOLIZUMAB
     Dosage: 300 MILLIGRAM
     Route: 042
  7. VEDOLIZUMAB [Suspect]
     Active Substance: VEDOLIZUMAB
     Dosage: 300 MILLIGRAM
     Route: 042
  8. VEDOLIZUMAB [Suspect]
     Active Substance: VEDOLIZUMAB
     Dosage: 300 MILLIGRAM
     Route: 042
  9. VEDOLIZUMAB [Suspect]
     Active Substance: VEDOLIZUMAB
     Dosage: 300 MILLIGRAM
     Route: 042
  10. VEDOLIZUMAB [Suspect]
     Active Substance: VEDOLIZUMAB
     Dosage: 300 MILLIGRAM, Q4WEEKS
     Route: 042
     Dates: start: 20210928
  11. DEXILANT [Suspect]
     Active Substance: DEXLANSOPRAZOLE
     Indication: Product used for unknown indication
     Dosage: 60 MILLIGRAM
     Route: 065
  12. Salofalk [Concomitant]
     Dosage: UNK
     Route: 048

REACTIONS (16)
  - Colitis ulcerative [Unknown]
  - Haematochezia [Unknown]
  - Rectal haemorrhage [Not Recovered/Not Resolved]
  - Polycythaemia vera [Unknown]
  - Frequent bowel movements [Recovered/Resolved]
  - Foreign body sensation in eyes [Unknown]
  - Corneal abrasion [Unknown]
  - Abdominal pain upper [Unknown]
  - Proctalgia [Not Recovered/Not Resolved]
  - Drug level below therapeutic [Unknown]
  - Therapeutic reaction time decreased [Unknown]
  - Anorectal discomfort [Not Recovered/Not Resolved]
  - Off label use [Unknown]
  - Flushing [Unknown]
  - Pruritus [Unknown]
  - Paraesthesia [Unknown]

NARRATIVE: CASE EVENT DATE: 20190703
